FAERS Safety Report 19891730 (Version 1)
Quarter: 2021Q3

REPORT INFORMATION
  Report Type: Spontaneous
  Country: CN (occurrence: CN)
  Receive Date: 20210928
  Receipt Date: 20210928
  Transmission Date: 20211014
  Serious: Yes (Other)
  Sender: FDA-Public Use
  Company Number: CN-BAXTER-2021BAX030272

PATIENT
  Age: 43 Year
  Sex: Female
  Weight: 43.3 kg

DRUGS (12)
  1. SODIUM CHLORIDE. [Suspect]
     Active Substance: SODIUM CHLORIDE
     Indication: MEDICATION DILUTION
     Dosage: 0.9% SODIUM CHLORIDE 100 ML + EPIRUBICIN 120 MG
     Route: 041
     Dates: start: 20210907, end: 20210907
  2. ENDOXAN [Suspect]
     Active Substance: CYCLOPHOSPHAMIDE
     Indication: BREAST CANCER FEMALE
     Route: 041
     Dates: start: 20210907, end: 20210907
  3. PHARMORUBICIN [Suspect]
     Active Substance: EPIRUBICIN
     Indication: BREAST CANCER FEMALE
     Route: 041
     Dates: start: 20210907, end: 20210907
  4. OMEPRAZOLE. [Suspect]
     Active Substance: OMEPRAZOLE
     Indication: ANTIEMETIC SUPPORTIVE CARE
     Dosage: OMEPRAZOLE 40 MG + 0.9 NS 100 ML
     Route: 040
     Dates: start: 20210907
  5. 0.9% SODIUM CHLORIDE INJECTION [Suspect]
     Active Substance: SODIUM CHLORIDE
     Dosage: TROPISETRON INJECTION 5 MG + 0.9% SODIUM CHLORIDE 5 ML
     Route: 040
     Dates: start: 20210907
  6. 0.9% SODIUM CHLORIDE INJECTION [Suspect]
     Active Substance: SODIUM CHLORIDE
     Indication: MEDICATION DILUTION
     Dosage: OMEPRAZOLE 40 MG + 0.9 NS 100 ML
     Route: 040
     Dates: start: 20210907
  7. PROMETHAZINE [Suspect]
     Active Substance: PROMETHAZINE HYDROCHLORIDE
     Indication: NAUSEA
     Route: 030
     Dates: start: 20210907
  8. PROMETHAZINE [Suspect]
     Active Substance: PROMETHAZINE HYDROCHLORIDE
     Indication: VOMITING
  9. TROPISETRON [Suspect]
     Active Substance: TROPISETRON
     Indication: PROPHYLAXIS OF NAUSEA AND VOMITING
  10. DEXAMETHASONE. [Suspect]
     Active Substance: DEXAMETHASONE
     Indication: ANTIEMETIC SUPPORTIVE CARE
     Route: 040
     Dates: start: 20210907
  11. TROPISETRON [Suspect]
     Active Substance: TROPISETRON
     Indication: ANTIEMETIC SUPPORTIVE CARE
     Dosage: TROPISETRON INJECTION 5 MG + 0.9% SODIUM CHLORIDE 5 ML
     Route: 040
     Dates: start: 20210907
  12. SODIUM CHLORIDE. [Suspect]
     Active Substance: SODIUM CHLORIDE
     Dosage: 0.9% SODIUM CHLORIDE INJECTION 100 ML + CYCLOPHOSPHAMIDE 0.8 G
     Route: 041
     Dates: start: 20210907, end: 20210907

REACTIONS (4)
  - Dizziness [Recovering/Resolving]
  - Nausea [Recovering/Resolving]
  - Vomiting [Recovering/Resolving]
  - Headache [Recovering/Resolving]

NARRATIVE: CASE EVENT DATE: 20210907
